FAERS Safety Report 23663671 (Version 1)
Quarter: 2024Q1

REPORT INFORMATION
  Report Type: Spontaneous
  Country: US (occurrence: None)
  Receive Date: 20240321
  Receipt Date: 20240321
  Transmission Date: 20240409
  Serious: Yes (Other)
  Sender: FDA-Public Use
  Company Number: None

PATIENT
  Age: 33 Year
  Sex: Female
  Weight: 72 kg

DRUGS (3)
  1. ATOMOXETINE [Suspect]
     Active Substance: ATOMOXETINE\ATOMOXETINE HYDROCHLORIDE
     Indication: Bipolar disorder
     Dates: start: 20240101, end: 20240321
  2. ATOMOXETINE [Suspect]
     Active Substance: ATOMOXETINE\ATOMOXETINE HYDROCHLORIDE
     Indication: Attention deficit hyperactivity disorder
  3. LITHIUM [Suspect]
     Active Substance: LITHIUM

REACTIONS (7)
  - Heart rate irregular [None]
  - Headache [None]
  - Back pain [None]
  - Neck pain [None]
  - Asthenia [None]
  - Gait disturbance [None]
  - Nonspecific reaction [None]

NARRATIVE: CASE EVENT DATE: 20240318
